FAERS Safety Report 9947441 (Version 1)
Quarter: 2014Q1

REPORT INFORMATION
  Report Type: Report from Study
  Country: US (occurrence: US)
  Receive Date: 20140303
  Receipt Date: 20140303
  Transmission Date: 20141002
  Serious: No
  Sender: FDA-Public Use
  Company Number: US-ABBVIE-13P-163-1064082-00

PATIENT
  Age: 41 Year
  Sex: Female

DRUGS (5)
  1. HUMIRA [Suspect]
     Indication: CROHN^S DISEASE
     Dates: start: 20121113, end: 20130201
  2. SEROQUEL XR [Concomitant]
     Indication: BIPOLAR DISORDER
     Dosage: IN THE EVENING
  3. XANAX [Concomitant]
     Indication: ANXIETY
  4. CYMBALTA [Concomitant]
     Indication: BIPOLAR DISORDER
     Dosage: 30 MG DAILY
  5. CYMBALTA [Concomitant]
     Indication: ARTHRALGIA

REACTIONS (1)
  - Nasopharyngitis [Not Recovered/Not Resolved]
